FAERS Safety Report 9457578 (Version 1)
Quarter: 2013Q3

REPORT INFORMATION
  Report Type: Spontaneous
  Country: US (occurrence: None)
  Receive Date: 20130812
  Receipt Date: 20130812
  Transmission Date: 20140515
  Serious: Yes (Other)
  Sender: FDA-Public Use
  Company Number: None

PATIENT
  Age: 28 Year
  Sex: Male

DRUGS (1)
  1. MEFLOQUINE [Suspect]
     Dosage: 1 TABLET WEEKLY
     Route: 048
     Dates: start: 20130108, end: 20130401

REACTIONS (1)
  - Panic attack [None]
